FAERS Safety Report 10276069 (Version 6)
Quarter: 2015Q2

REPORT INFORMATION
  Report Type: Report from Study
  Country: US (occurrence: US)
  Receive Date: 20140703
  Receipt Date: 20150617
  Transmission Date: 20150821
  Serious: Yes (Hospitalization, Other)
  Sender: FDA-Public Use
  Company Number: US-SA-2014SA037341

PATIENT
  Age: 55 Year
  Sex: Female
  Weight: 74.84 kg

DRUGS (9)
  1. LANOXIN [Concomitant]
     Active Substance: DIGOXIN
     Indication: CARDIAC DISORDER
     Dosage: .0125 MGM
     Dates: start: 1990
  2. TYLENOL PM [Concomitant]
     Active Substance: ACETAMINOPHEN\DIPHENHYDRAMINE
  3. LASIX [Concomitant]
     Active Substance: FUROSEMIDE
     Indication: SWELLING
  4. PLAVIX [Concomitant]
     Active Substance: CLOPIDOGREL BISULFATE
     Indication: ARTERIAL STENT INSERTION
     Dosage: STENT IN LAD
     Dates: start: 2001
  5. AUBAGIO [Suspect]
     Active Substance: TERIFLUNOMIDE
     Indication: MULTIPLE SCLEROSIS
     Dosage: FREQUENCY : AT NIGHT
     Route: 048
     Dates: start: 20140304, end: 201404
  6. SOTALOL. [Concomitant]
     Active Substance: SOTALOL
     Indication: CARDIAC DISORDER
     Dates: start: 2003
  7. AUBAGIO [Suspect]
     Active Substance: TERIFLUNOMIDE
     Indication: MULTIPLE SCLEROSIS
     Route: 048
  8. KCL [Concomitant]
     Active Substance: POTASSIUM CHLORIDE
     Indication: SWELLING
  9. BACLOFEN. [Concomitant]
     Active Substance: BACLOFEN
     Indication: MUSCLE SPASMS
     Dates: start: 1985

REACTIONS (14)
  - Muscular weakness [Unknown]
  - Feeling abnormal [Unknown]
  - Asthenia [Unknown]
  - Muscular weakness [Unknown]
  - Arthralgia [Unknown]
  - Confusional state [Unknown]
  - Progressive multiple sclerosis [Unknown]
  - Fall [Unknown]
  - Multiple sclerosis relapse [Recovering/Resolving]
  - Memory impairment [Unknown]
  - Dysarthria [Unknown]
  - Disorientation [Unknown]
  - Abasia [Unknown]
  - Contusion [Unknown]

NARRATIVE: CASE EVENT DATE: 2014
